FAERS Safety Report 8030975-3 (Version None)
Quarter: 2012Q1

REPORT INFORMATION
  Report Type: 
  Country: None (occurrence: None)
  Receive Date: 20120105
  Receipt Date: 20111220
  Transmission Date: 20120608
  Serious: Yes (Life-Threatening)
  Sender: FDA-Public Use
  Company Number: 1000026554

PATIENT
  Sex: Male

DRUGS (6)
  1. MEMANTINE HYDROCHLORIDE [Suspect]
     Indication: DEMENTIA ALZHEIMER'S TYPE
     Dosage: 5 MG (5 MG,1 IN 1 D),ORAL
     Route: 048
     Dates: start: 20111115, end: 20111123
  2. ALLEGRA [Concomitant]
  3. NORVASC [Concomitant]
  4. COMELIAN KOWA (DILAZEP DIHYDROCHLORIDE) [Concomitant]
  5. ARICEPT [Concomitant]
  6. TOKI-INSHI [Concomitant]

REACTIONS (2)
  - DUODENAL ULCER HAEMORRHAGE [None]
  - GASTRIC ULCER [None]
